FAERS Safety Report 14832478 (Version 1)
Quarter: 2018Q2

REPORT INFORMATION
  Report Type: Spontaneous
  Country: CN (occurrence: CN)
  Receive Date: 20180501
  Receipt Date: 20180501
  Transmission Date: 20180711
  Serious: Yes (Other)
  Sender: FDA-Public Use
  Company Number: CN-BAYER-2018-082290

PATIENT
  Age: 71 Year
  Sex: Male
  Weight: 70 kg

DRUGS (2)
  1. BAYASPIRIN 100 MG [Suspect]
     Active Substance: ASPIRIN
     Indication: DRUG THERAPY
     Dosage: 100 MG, QD
     Route: 048
     Dates: start: 20180314, end: 20180326
  2. COLCHICINE. [Suspect]
     Active Substance: COLCHICINE
     Indication: DRUG THERAPY
     Dosage: 0.5 MG, BID
     Route: 048
     Dates: start: 20180314, end: 20180326

REACTIONS (3)
  - Blood creatinine increased [Unknown]
  - Platelet count decreased [Unknown]
  - Haemoglobin decreased [Unknown]

NARRATIVE: CASE EVENT DATE: 20180319
